FAERS Safety Report 7355373-7 (Version None)
Quarter: 2011Q1

REPORT INFORMATION
  Report Type: 
  Country: None (occurrence: None)
  Receive Date: 20110316
  Receipt Date: 20110308
  Transmission Date: 20110831
  Serious: Yes (Hospitalization)
  Sender: FDA-Public Use
  Company Number: DE-ROCHE-764749

PATIENT
  Age: 70 Year
  Sex: Female

DRUGS (1)
  1. TAMIFLU [Suspect]
     Route: 048

REACTIONS (2)
  - DRUG RESISTANCE [None]
  - LUNG INFILTRATION [None]
